FAERS Safety Report 5701029-3 (Version None)
Quarter: 2008Q2

REPORT INFORMATION
  Report Type: 
  Country: None (occurrence: None)
  Receive Date: 20080410
  Receipt Date: 20080404
  Transmission Date: 20081010
  Serious: Yes (Hospitalization)
  Sender: FDA-Public Use
  Company Number: DE-WYE-G01348708

PATIENT
  Age: 74 Year
  Sex: Female

DRUGS (4)
  1. TREVILOR RETARD [Suspect]
     Dosage: 75 MG (FREQUENCY UNKNOWN)
     Route: 048
     Dates: start: 19980101
  2. TREVILOR RETARD [Suspect]
     Dosage: DOSE AND FREQUENCY UNKNOWN
     Route: 048
     Dates: end: 20060101
  3. TREVILOR RETARD [Suspect]
     Route: 048
     Dates: start: 20060101
  4. TREVILOR RETARD [Suspect]
     Dosage: DOSE AND FREQUENCY UNKNOWN
     Route: 048

REACTIONS (6)
  - BRONCHITIS [None]
  - CARDIOMEGALY [None]
  - DISEASE RECURRENCE [None]
  - DRUG WITHDRAWAL SYNDROME [None]
  - HYPERTENSION [None]
  - MUSCULAR WEAKNESS [None]
